FAERS Safety Report 10494377 (Version 1)
Quarter: 2014Q4

REPORT INFORMATION
  Report Type: Spontaneous
  Country: US (occurrence: US)
  Receive Date: 20141003
  Receipt Date: 20141003
  Transmission Date: 20150528
  Serious: Yes (Hospitalization)
  Sender: FDA-Public Use
  Company Number: US-JNJFOC-20141000778

PATIENT
  Sex: Female
  Weight: 45 kg

DRUGS (4)
  1. ALLOPURINOL. [Concomitant]
     Active Substance: ALLOPURINOL
     Indication: RENAL DISORDER
  2. IMBRUVICA [Suspect]
     Active Substance: IBRUTINIB
     Indication: CHRONIC LYMPHOCYTIC LEUKAEMIA
     Route: 065
     Dates: start: 20140502, end: 20140812
  3. MULTIVITAMINS [Concomitant]
     Active Substance: VITAMINS
     Indication: SUPPLEMENTATION THERAPY
  4. OCUVITE NOS [Concomitant]
     Indication: EYE DISORDER

REACTIONS (8)
  - Haemorrhage intracranial [Recovered/Resolved]
  - Spinal cord haemorrhage [Recovered/Resolved]
  - Contusion [Recovering/Resolving]
  - Hip fracture [Recovered/Resolved]
  - Gastrooesophageal reflux disease [Recovered/Resolved]
  - Fall [Recovered/Resolved]
  - Haemorrhage [Recovered/Resolved]
  - Weight decreased [Recovered/Resolved]

NARRATIVE: CASE EVENT DATE: 2014
